FAERS Safety Report 15930282 (Version 4)
Quarter: 2019Q1

REPORT INFORMATION
  Report Type: Report from Study
  Country: US (occurrence: US)
  Receive Date: 20190207
  Receipt Date: 20190327
  Transmission Date: 20190417
  Serious: Yes (Hospitalization, Other)
  Sender: FDA-Public Use
  Company Number: US-ROCHE-2254121

PATIENT
  Age: 33 Year
  Sex: Female
  Weight: 113.5 kg

DRUGS (15)
  1. OCREVUS [Suspect]
     Active Substance: OCRELIZUMAB
     Indication: RELAPSING MULTIPLE SCLEROSIS
     Dosage: SECOND HALF DOSE ;ONGOING: NO
     Route: 042
     Dates: start: 20180305
  2. OCREVUS [Suspect]
     Active Substance: OCRELIZUMAB
     Dosage: ONGOING YES
     Route: 042
     Dates: start: 201802
  3. OCREVUS [Suspect]
     Active Substance: OCRELIZUMAB
     Route: 042
  4. DULOXETINE. [Concomitant]
     Active Substance: DULOXETINE
     Dosage: ONGOING YES
     Route: 048
  5. OCREVUS [Suspect]
     Active Substance: OCRELIZUMAB
     Indication: PRIMARY PROGRESSIVE MULTIPLE SCLEROSIS
     Dosage: FIRST HALF DOSE ;ONGOING: NO
     Route: 042
     Dates: start: 20180219
  6. PREDNISONE. [Suspect]
     Active Substance: PREDNISONE
     Dosage: 3 TABLETS ONCE A DAY ;ONGOING: NO
     Route: 048
     Dates: start: 201901, end: 20190124
  7. BACLOFEN. [Concomitant]
     Active Substance: BACLOFEN
     Dosage: ONGOING YES
     Route: 048
  8. OMEPRAZOLE. [Concomitant]
     Active Substance: OMEPRAZOLE
     Dosage: ONGOING YES
     Route: 048
  9. OCREVUS [Suspect]
     Active Substance: OCRELIZUMAB
     Dosage: FIRST FULL DOSE ;ONGOING: YES
     Route: 042
     Dates: start: 20180806
  10. GABAPENTIN. [Concomitant]
     Active Substance: GABAPENTIN
     Dosage: 3 PILLS 3 TIMES A DAY ;ONGOING: YES
     Route: 048
  11. CLINDAMYCIN. [Concomitant]
     Active Substance: CLINDAMYCIN
     Dosage: ONGOING: YES
     Route: 061
  12. ACETAZOLAMIDE. [Concomitant]
     Active Substance: ACETAZOLAMIDE
     Dosage: 2 TABLETS TWICE A DAY ;ONGOING: YES
     Route: 048
  13. TIZANIDINE. [Concomitant]
     Active Substance: TIZANIDINE
     Dosage: AT NIGHT ;ONGOING: YES
     Route: 048
  14. PREDNISONE. [Suspect]
     Active Substance: PREDNISONE
     Indication: PRODUCT USED FOR UNKNOWN INDICATION
     Dosage: ONGOING NO
     Route: 042
     Dates: start: 20190116
  15. IRBESARTAN. [Concomitant]
     Active Substance: IRBESARTAN
     Indication: HYPERTENSION
     Dosage: ONGOING YES
     Route: 048

REACTIONS (19)
  - Feeling abnormal [Recovered/Resolved]
  - Diarrhoea [Not Recovered/Not Resolved]
  - Arthralgia [Recovering/Resolving]
  - Vision blurred [Unknown]
  - Peripheral swelling [Recovered/Resolved]
  - Periarthritis [Not Recovered/Not Resolved]
  - Muscular weakness [Recovered/Resolved]
  - Joint swelling [Recovered/Resolved]
  - Multiple sclerosis relapse [Unknown]
  - Blood potassium decreased [Unknown]
  - Nausea [Not Recovered/Not Resolved]
  - Increased upper airway secretion [Recovered/Resolved]
  - Multiple sclerosis [Not Recovered/Not Resolved]
  - Nasopharyngitis [Recovered/Resolved]
  - Immunosuppression [Unknown]
  - Oropharyngeal pain [Recovered/Resolved]
  - Pain in extremity [Recovered/Resolved]
  - Dry throat [Not Recovered/Not Resolved]
  - Vomiting [Unknown]

NARRATIVE: CASE EVENT DATE: 20190116
